FAERS Safety Report 8873951 (Version 1)
Quarter: 2012Q4

REPORT INFORMATION
  Report Type: Report from Study
  Country: US (occurrence: US)
  Receive Date: 20121030
  Receipt Date: 20121030
  Transmission Date: 20130627
  Serious: No
  Sender: FDA-Public Use
  Company Number: US-ABBOTT-12P-163-0929951-00

PATIENT
  Sex: Female
  Weight: 46.31 kg

DRUGS (8)
  1. LUPRON DEPOT 3.75 MG [Suspect]
     Indication: ENDOMETRIOSIS
     Dates: start: 20120214, end: 201203
  2. LO LOESTRIN [Concomitant]
     Indication: ENDOMETRIOSIS
  3. LEVOXYL [Concomitant]
     Indication: HYPOTHYROIDISM
  4. TOPAMAX [Concomitant]
     Indication: MIGRAINE
     Dosage: Stopped a bit last 2 months
  5. ATARAX [Concomitant]
     Indication: URTICARIA
  6. ATARAX [Concomitant]
     Indication: VULVOVAGINAL PAIN
  7. WELPAC [Concomitant]
     Indication: MIGRAINE
  8. TIZANIDINE [Concomitant]
     Indication: MIGRAINE

REACTIONS (24)
  - Crying [Not Recovered/Not Resolved]
  - Depression [Not Recovered/Not Resolved]
  - Agitation [Not Recovered/Not Resolved]
  - Personality change [Not Recovered/Not Resolved]
  - Suicidal ideation [Recovered/Resolved]
  - Hot flush [Not Recovered/Not Resolved]
  - Insomnia [Not Recovered/Not Resolved]
  - Nightmare [Unknown]
  - Weight decreased [Not Recovered/Not Resolved]
  - Decreased appetite [Not Recovered/Not Resolved]
  - Disorientation [Not Recovered/Not Resolved]
  - Bradyphrenia [Not Recovered/Not Resolved]
  - Disturbance in attention [Not Recovered/Not Resolved]
  - Apathy [Not Recovered/Not Resolved]
  - Impaired work ability [Not Recovered/Not Resolved]
  - Therapeutic response unexpected [Not Recovered/Not Resolved]
  - Hair texture abnormal [Not Recovered/Not Resolved]
  - Hair disorder [Not Recovered/Not Resolved]
  - Migraine [Not Recovered/Not Resolved]
  - Hyperhidrosis [Not Recovered/Not Resolved]
  - Hot flush [Unknown]
  - Hostility [Recovered/Resolved]
  - Aggression [Recovered/Resolved]
  - Disturbance in attention [Recovered/Resolved]
